FAERS Safety Report 24368092 (Version 1)
Quarter: 2024Q3

REPORT INFORMATION
  Report Type: Spontaneous
  Country: GB (occurrence: GB)
  Receive Date: 20240926
  Receipt Date: 20240926
  Transmission Date: 20241016
  Serious: Yes (Other)
  Sender: TEVA
  Company Number: None

PATIENT
  Sex: Female

DRUGS (3)
  1. LEVOTHYROXINE [Suspect]
     Active Substance: LEVOTHYROXINE\LEVOTHYROXINE SODIUM
     Indication: Hypothyroidism
     Dosage: 75MCG, TEVA UK LEVOTHYROXINE
     Route: 065
  2. NAPROXEN [Concomitant]
     Active Substance: NAPROXEN
     Indication: Product used for unknown indication
  3. OMEPRAZOLE [Concomitant]
     Active Substance: OMEPRAZOLE
     Indication: Product used for unknown indication

REACTIONS (5)
  - Arthralgia [Recovered/Resolved]
  - Frequent bowel movements [Recovering/Resolving]
  - Poor quality sleep [Recovered/Resolved]
  - Abnormal dreams [Recovered/Resolved]
  - Malaise [Recovered/Resolved]
